FAERS Safety Report 11627092 (Version 2)
Quarter: 2016Q1

REPORT INFORMATION
  Report Type: Report from Study
  Country: TW (occurrence: TW)
  Receive Date: 20151013
  Receipt Date: 20160123
  Transmission Date: 20160525
  Serious: Yes (Hospitalization, Other)
  Sender: FDA-Public Use
  Company Number: TW-BRISTOL-MYERS SQUIBB COMPANY-BMS-2015-066986

PATIENT
  Age: 59 Year
  Sex: Male

DRUGS (15)
  1. DACLATASVIR DIHYDROCHLORIDE [Suspect]
     Active Substance: DACLATASVIR DIHYDROCHLORIDE
     Indication: HEPATITIS C
     Dosage: 60 MG, QD
     Route: 048
     Dates: start: 20150720
  2. GALVUS [Concomitant]
     Active Substance: VILDAGLIPTIN
     Indication: DIABETES MELLITUS
     Dosage: UNK
     Route: 065
     Dates: start: 20150707
  3. TYTIN [Concomitant]
     Indication: CHRONIC KIDNEY DISEASE
     Dosage: UNK
     Route: 065
     Dates: start: 2014
  4. DIPYRIDAMOLE. [Concomitant]
     Active Substance: DIPYRIDAMOLE
     Indication: PRODUCT USED FOR UNKNOWN INDICATION
     Dosage: UNK
     Route: 065
     Dates: start: 20150707
  5. ASUNAPREVIR [Suspect]
     Active Substance: ASUNAPREVIR
     Indication: HEPATITIS C
     Dosage: 100 MG, BID
     Route: 048
     Dates: start: 20150720
  6. INDERAL [Concomitant]
     Active Substance: PROPRANOLOL HYDROCHLORIDE
     Indication: PRODUCT USED FOR UNKNOWN INDICATION
     Dosage: UNK
     Route: 065
     Dates: start: 2011
  7. CAPDON [Concomitant]
     Indication: CHRONIC KIDNEY DISEASE
     Dosage: UNK
     Route: 065
     Dates: start: 20150707
  8. FOLIC ACID. [Concomitant]
     Active Substance: FOLIC ACID
     Indication: CHRONIC KIDNEY DISEASE
     Dosage: UNK
     Route: 065
     Dates: start: 2014
  9. WANSE [Concomitant]
     Indication: CHRONIC KIDNEY DISEASE
     Dosage: UNK
     Route: 065
     Dates: start: 2014
  10. SENNAPUR [Concomitant]
     Indication: CONSTIPATION
     Dosage: UNK
     Route: 065
     Dates: start: 20150917, end: 20150920
  11. RASITOL                            /00032601/ [Concomitant]
     Indication: OEDEMA
     Dosage: UNK
     Route: 065
     Dates: start: 20150917, end: 20150920
  12. RANITIDINE [Concomitant]
     Active Substance: RANITIDINE\RANITIDINE HYDROCHLORIDE
     Indication: GASTRIC ULCER
     Dosage: UNK
     Route: 065
     Dates: start: 20150917, end: 20150920
  13. LANTUS [Concomitant]
     Active Substance: INSULIN GLARGINE
     Indication: DIABETES MELLITUS
     Dosage: UNK
     Route: 065
     Dates: start: 2013
  14. CATAFLAM                           /00372302/ [Concomitant]
     Active Substance: DICLOFENAC POTASSIUM
     Indication: PAIN
     Dosage: UNK
     Route: 065
     Dates: start: 20150917, end: 20150920
  15. PREDNISOLONE. [Concomitant]
     Active Substance: PREDNISOLONE
     Indication: PAIN
     Dosage: UNK
     Route: 065
     Dates: start: 20150917, end: 20150920

REACTIONS (3)
  - Varices oesophageal [Unknown]
  - Packed red blood cell transfusion [Unknown]
  - Anaemia [Recovered/Resolved]

NARRATIVE: CASE EVENT DATE: 20150920
